FAERS Safety Report 16188190 (Version 1)
Quarter: 2019Q2

REPORT INFORMATION
  Report Type: Spontaneous
  Country: GR (occurrence: GR)
  Receive Date: 20190412
  Receipt Date: 20190412
  Transmission Date: 20190711
  Serious: Yes (Death)
  Sender: FDA-Public Use
  Company Number: GR-TEVA-2019-GR-1038469

PATIENT
  Age: 50 Year
  Sex: Male

DRUGS (9)
  1. METOPROLOL. [Suspect]
     Active Substance: METOPROLOL
     Route: 065
  2. ATORVASTATIN [Suspect]
     Active Substance: ATORVASTATIN
     Route: 065
  3. CLOPIDOGREL [Suspect]
     Active Substance: CLOPIDOGREL BISULFATE
     Route: 065
  4. VALSARTAN. [Suspect]
     Active Substance: VALSARTAN
     Route: 065
  5. MONONITRITE ISOSORBITE [Suspect]
     Active Substance: ISOSORBIDE MONONITRATE
     Route: 065
  6. BIVALIRUDIN. [Suspect]
     Active Substance: BIVALIRUDIN
     Dosage: MAINTENANCE INFUSION
     Route: 041
  7. BIVALIRUDIN. [Suspect]
     Active Substance: BIVALIRUDIN
     Route: 040
  8. ASPIRIN. [Suspect]
     Active Substance: ASPIRIN
     Route: 065
  9. HEPARIN [Suspect]
     Active Substance: HEPARIN SODIUM
     Route: 013

REACTIONS (1)
  - Kounis syndrome [Fatal]
